FAERS Safety Report 12808312 (Version 3)
Quarter: 2016Q4

REPORT INFORMATION
  Report Type: Report from Study
  Country: None (occurrence: CH)
  Receive Date: 20161004
  Receipt Date: 20161024
  Transmission Date: 20170207
  Serious: Yes (Death)
  Sender: FDA-Public Use
  Company Number: CH-ABBVIE-16P-151-1744142-00

PATIENT
  Age: 78 Year
  Sex: Male

DRUGS (1)
  1. DUODOPA [Suspect]
     Active Substance: CARBIDOPA\LEVODOPA
     Indication: PARKINSON^S DISEASE
     Dosage: 1.5ML/H
     Route: 050
     Dates: start: 20061129

REACTIONS (1)
  - Death [Fatal]

NARRATIVE: CASE EVENT DATE: 20160828
